FAERS Safety Report 4517959-4 (Version None)
Quarter: 2004Q4

REPORT INFORMATION
  Report Type: 
  Country: None (occurrence: None)
  Receive Date: 20041130
  Receipt Date: 20041112
  Transmission Date: 20050328
  Serious: Yes (Hospitalization)
  Sender: FDA-Public Use
  Company Number: DSA_25387_2004

PATIENT
  Age: 81 Year
  Sex: Female

DRUGS (6)
  1. MONO-TILDIEM [Suspect]
     Indication: HYPERTENSION
     Dosage: 200 MG Q DAY PO
     Route: 048
     Dates: end: 20040101
  2. ALDACTAZINE [Suspect]
     Dosage: 25 MG Q DAY PO
     Route: 048
     Dates: end: 20040101
  3. TANAKAN [Concomitant]
  4. VASTAREL    BIOPHARMA [Concomitant]
  5. KARDEGIC [Concomitant]
  6. ZOPICLONE [Concomitant]

REACTIONS (6)
  - ASTHENIA [None]
  - DIZZINESS [None]
  - EPIGASTRIC DISCOMFORT [None]
  - FALL [None]
  - ORTHOSTATIC HYPOTENSION [None]
  - VERTIGO [None]
